FAERS Safety Report 10464204 (Version 3)
Quarter: 2014Q4

REPORT INFORMATION
  Report Type: Spontaneous
  Country: CA (occurrence: None)
  Receive Date: 20140917
  Receipt Date: 20141210
  Transmission Date: 20150528
  Serious: Yes (Hospitalization, Other)
  Sender: FDA-Public Use
  Company Number: CA-017059

PATIENT
  Age: 75 Year
  Sex: Male

DRUGS (14)
  1. ALENDRONATE [Concomitant]
     Active Substance: ALENDRONATE SODIUM
  2. SYNTHROID [Concomitant]
     Active Substance: LEVOTHYROXINE SODIUM
  3. BISOPROLOL [Concomitant]
     Active Substance: BISOPROLOL
  4. IRON SULFATE [Concomitant]
     Active Substance: FERROUS SULFATE ANHYDROUS
  5. PAROXETINE [Concomitant]
     Active Substance: PAROXETINE\PAROXETINE HYDROCHLORIDE
  6. CIPROFLOXACIN. [Concomitant]
     Active Substance: CIPROFLOXACIN
  7. DEGARELIX [Suspect]
     Active Substance: DEGARELIX
     Indication: PROSTATE CANCER
     Route: 058
     Dates: start: 20140401
  8. ASA [Concomitant]
     Active Substance: ASPIRIN
  9. ROSUVASTATIN [Concomitant]
     Active Substance: ROSUVASTATIN
  10. LANTUS [Concomitant]
     Active Substance: INSULIN GLARGINE
  11. PRADAXA [Concomitant]
     Active Substance: DABIGATRAN ETEXILATE MESYLATE
  12. HUMALOG [Concomitant]
     Active Substance: INSULIN LISPRO
  13. PANTOLOC [Concomitant]
     Active Substance: PANTOPRAZOLE SODIUM
  14. AMLODIPINE [Concomitant]
     Active Substance: AMLODIPINE BESYLATE

REACTIONS (5)
  - Bladder cyst [None]
  - Pain [None]
  - Asthenia [None]
  - Back pain [None]
  - Urinary retention [None]

NARRATIVE: CASE EVENT DATE: 20140806
